FAERS Safety Report 9384963 (Version 1)
Quarter: 2013Q3

REPORT INFORMATION
  Report Type: Spontaneous
  Country: US (occurrence: US)
  Receive Date: 20130705
  Receipt Date: 20130705
  Transmission Date: 20140515
  Serious: No
  Sender: FDA-Public Use
  Company Number: US-GLAXOSMITHKLINE-A1019603A

PATIENT
  Sex: 0

DRUGS (1)
  1. BENLYSTA [Suspect]

REACTIONS (2)
  - Drug administration error [Unknown]
  - Adverse drug reaction [Unknown]
